FAERS Safety Report 12089289 (Version 3)
Quarter: 2016Q1

REPORT INFORMATION
  Report Type: Spontaneous
  Country: PT (occurrence: PT)
  Receive Date: 20160218
  Receipt Date: 20160310
  Transmission Date: 20160526
  Serious: Yes (Other)
  Sender: FDA-Public Use
  Company Number: PT-ACTAVIS-2016-03245

PATIENT
  Age: 80 Year
  Sex: Male

DRUGS (4)
  1. DOCETAXEL ACTAVIS [Suspect]
     Active Substance: DOCETAXEL
     Indication: PROSTATE CANCER
     Dosage: 75 MG/M2, 1/ THREE WEEKS
     Route: 042
     Dates: start: 20160112, end: 20160112
  2. DEXAMETHASONE. [Concomitant]
     Active Substance: DEXAMETHASONE
     Indication: ALLERGY PROPHYLAXIS
     Dosage: 20 MG, DAILY (PR?-MEDICA??O - PREMEDICATION)
     Route: 042
     Dates: start: 20160112, end: 20160112
  3. PREDNISOLONE. [Concomitant]
     Active Substance: PREDNISOLONE
     Indication: ALLERGY PROPHYLAXIS
     Dosage: 40 MG, 40 MG ON THE DAY BEFORE, AND 40 MG + 40 MG ON TREATMENT DAY (PR?-MEDICA??O - PREMEDICATION)
     Route: 048
     Dates: start: 20160111, end: 20160112
  4. ONDANSETROM                        /00955301/ [Concomitant]
     Indication: ALLERGY PROPHYLAXIS
     Dosage: 8 MG, DAILY (PR?-MEDICA??O - PREMEDICATION)
     Route: 042
     Dates: start: 20160112, end: 20160112

REACTIONS (2)
  - Erythema [Recovered/Resolved]
  - Hypersensitivity [Recovered/Resolved]

NARRATIVE: CASE EVENT DATE: 20160112
